FAERS Safety Report 22225126 (Version 1)
Quarter: 2023Q2

REPORT INFORMATION
  Report Type: Spontaneous
  Country: US (occurrence: None)
  Receive Date: 20230417
  Receipt Date: 20230417
  Transmission Date: 20230722
  Serious: No
  Sender: FDA-Public Use
  Company Number: None

PATIENT
  Age: 62 Year
  Sex: Female

DRUGS (2)
  1. KESIMPTA [Suspect]
     Active Substance: OFATUMUMAB
     Indication: Multiple sclerosis
     Dosage: INJECT 20MG SUBCUTANEOUSLY AT WEEK 0,1 AND 2 THEN 20MG ONCE A MONTH STARTING AT WEEK 4  AS DIRECTED
     Route: 058
     Dates: start: 202106
  2. KESIMPTA [Suspect]
     Active Substance: OFATUMUMAB
     Dosage: OTHER FREQUENCY : MHLY START AT WK 4;?

REACTIONS (4)
  - Illness [None]
  - Feeding disorder [None]
  - Salivary hypersecretion [None]
  - Multiple sclerosis relapse [None]
